FAERS Safety Report 4717163-0 (Version None)
Quarter: 2005Q3

REPORT INFORMATION
  Report Type: 
  Country: None (occurrence: None)
  Receive Date: 20050719
  Receipt Date: 20050713
  Transmission Date: 20060218
  Serious: Yes (Life-Threatening)
  Sender: FDA-Public Use
  Company Number: NO-GLAXOSMITHKLINE-B0387805A

PATIENT
  Age: 73 Year
  Sex: Male

DRUGS (6)
  1. AVANDIA [Suspect]
     Indication: DIABETES MELLITUS
     Dosage: 4MG PER DAY
     Route: 048
     Dates: end: 20050501
  2. METFORMIN HCL [Suspect]
     Indication: DIABETES MELLITUS
     Dosage: 500MG TWICE PER DAY
     Route: 048
     Dates: end: 20050626
  3. AMARYL [Suspect]
     Indication: DIABETES MELLITUS
     Dosage: 4MG PER DAY
     Route: 048
     Dates: end: 20050626
  4. SIMVASTATIN [Concomitant]
     Dosage: 20MG PER DAY
     Route: 048
  5. RAMIPRIL [Concomitant]
     Indication: HYPERTENSION
     Dosage: 25MG PER DAY
     Route: 048
  6. ALBYL-E [Concomitant]
     Indication: THROMBOSIS PROPHYLAXIS
     Dosage: 75MG PER DAY
     Route: 048

REACTIONS (4)
  - HYPERKALAEMIA [None]
  - HYPOGLYCAEMIC COMA [None]
  - LACTIC ACIDOSIS [None]
  - RENAL FAILURE ACUTE [None]
